FAERS Safety Report 18012725 (Version 1)
Quarter: 2020Q3

REPORT INFORMATION
  Report Type: Spontaneous
  Country: US (occurrence: US)
  Receive Date: 20200712
  Receipt Date: 20200712
  Transmission Date: 20201103
  Serious: No
  Sender: FDA-Public Use
  Company Number: None

PATIENT
  Age: 61 Year
  Sex: Female
  Weight: 72 kg

DRUGS (1)
  1. BLUMEN CLEAR ADVANCED HAND SANITIZER [Suspect]
     Active Substance: ALCOHOL
     Indication: COVID-19
     Dosage: ?          QUANTITY:1 OUNCE(S);OTHER FREQUENCY:OFTEN/ COVID;?
     Route: 061
     Dates: start: 20200501, end: 20200712

REACTIONS (1)
  - Blister [None]

NARRATIVE: CASE EVENT DATE: 20200712
